FAERS Safety Report 9096298 (Version 1)
Quarter: 2013Q1

REPORT INFORMATION
  Report Type: Spontaneous
  Country: GB (occurrence: GB)
  Receive Date: 20130207
  Receipt Date: 20130207
  Transmission Date: 20140127
  Serious: Yes (Other)
  Sender: FDA-Public Use
  Company Number: GB-SANOFI-AVENTIS-2013SA008297

PATIENT
  Age: 73 Year
  Sex: Male
  Weight: 135 kg

DRUGS (10)
  1. CLOPIDOGREL BISULFATE [Suspect]
     Indication: HEART DISEASE CONGENITAL
     Dosage: DOSE: 75 (UNITS NOT PROVIDED)
     Route: 065
     Dates: start: 20120404
  2. OMEPRAZOLE [Concomitant]
     Dosage: DOSE: 20 (UNITS NOT PROVIDED)
  3. AMLODIPINE [Concomitant]
     Dosage: DOSE: 5 (UNITS NOT PROVIDED)
  4. BENDROFLUMETHIAZIDE [Concomitant]
     Dosage: DOSE: 2.5 (UNITS NOT PROVIDED)
  5. BISOPROLOL [Concomitant]
     Dosage: DOSE: 2.5 (UNITS NOT PROVIDED)
  6. FINASTERIDE [Concomitant]
     Dosage: DOSE: 5 (UNITS NOT PROVIDED)
  7. ASPIRIN [Concomitant]
     Dosage: DOSE: 75 (UNITS NOT PROVIDED)
  8. FYBOGEL [Concomitant]
  9. ATORVASTATIN [Concomitant]
     Dosage: DOSE: 10 (UNITS NOT PROVIDED)
  10. CAFFEINE/CODEINE PHOSPHATE/PARACETAMOL [Concomitant]
     Dosage: 2-5 TABLETS DAILY

REACTIONS (3)
  - Headache [Not Recovered/Not Resolved]
  - Off label use [Unknown]
  - Fatigue [Not Recovered/Not Resolved]
